FAERS Safety Report 24792155 (Version 1)
Quarter: 2024Q4

REPORT INFORMATION
  Report Type: Spontaneous
  Country: US (occurrence: US)
  Receive Date: 20241231
  Receipt Date: 20241231
  Transmission Date: 20250115
  Serious: Yes (Other)
  Sender: HIKMA
  Company Number: US-HIKMA PHARMACEUTICALS-US-H14001-24-12033

PATIENT
  Age: 42 Year
  Sex: Male

DRUGS (5)
  1. CISPLATIN [Suspect]
     Active Substance: CISPLATIN
     Indication: Adenocarcinoma
     Dosage: 3 CYCLES
     Route: 065
  2. PEMETREXED [Suspect]
     Active Substance: PEMETREXED
     Indication: Adenocarcinoma
     Dosage: 3 CYCLES
     Route: 065
  3. HYDROXYCHLOROQUINE [Concomitant]
     Active Substance: HYDROXYCHLOROQUINE
     Indication: Dermatomyositis
     Dosage: UNK
     Route: 065
  4. MYCOPHENOLIC ACID [Concomitant]
     Active Substance: MYCOPHENOLIC ACID
     Indication: Dermatomyositis
     Dosage: UNK
     Route: 065
  5. PREDNISONE [Concomitant]
     Active Substance: PREDNISONE
     Indication: Dermatomyositis
     Dosage: 15 MILLIGRAM, QD
     Route: 065

REACTIONS (1)
  - Disease progression [Not Recovered/Not Resolved]
